FAERS Safety Report 9413384 (Version 1)
Quarter: 2013Q3

REPORT INFORMATION
  Report Type: Spontaneous
  Country: ES (occurrence: ES)
  Receive Date: 20130722
  Receipt Date: 20130722
  Transmission Date: 20140515
  Serious: Yes (Other)
  Sender: FDA-Public Use
  Company Number: ES-MYLANLABS-2013S1015603

PATIENT
  Age: 76 Year
  Sex: Female

DRUGS (10)
  1. ACICLOVIR [Suspect]
     Indication: ANTIBIOTIC THERAPY
     Route: 065
  2. AMIKACIN [Suspect]
     Indication: ANTIBIOTIC THERAPY
     Route: 065
  3. VANCOMYCIN [Suspect]
     Indication: ANTIBIOTIC THERAPY
     Route: 065
  4. PANTOPRAZOLE [Suspect]
     Dosage: FOR A PERIOD EXCEEDING 2 MONTHS
     Route: 065
  5. RITUXIMAB [Concomitant]
     Indication: DIFFUSE LARGE B-CELL LYMPHOMA STAGE II
     Route: 065
  6. CYCLOPHOSPHAMIDE [Concomitant]
     Indication: DIFFUSE LARGE B-CELL LYMPHOMA STAGE II
     Route: 065
  7. DOXORUBICIN [Concomitant]
     Indication: DIFFUSE LARGE B-CELL LYMPHOMA STAGE II
     Route: 065
  8. VINCRISTINE [Concomitant]
     Indication: DIFFUSE LARGE B-CELL LYMPHOMA STAGE II
     Route: 065
  9. PREDNISONE [Concomitant]
     Indication: DIFFUSE LARGE B-CELL LYMPHOMA STAGE II
     Route: 065
  10. TRAMADOL [Concomitant]
     Indication: BACK PAIN
     Route: 065

REACTIONS (2)
  - Hypomagnesaemia [Recovered/Resolved]
  - Pain [Recovered/Resolved]
